FAERS Safety Report 6805552-X (Version None)
Quarter: 2010Q2

REPORT INFORMATION
  Report Type: 
  Country: None (occurrence: None)
  Receive Date: 20100628
  Receipt Date: 20080103
  Transmission Date: 20101027
  Serious: No
  Sender: FDA-Public Use
  Company Number: US-PFIZER INC-2008001936

PATIENT
  Sex: Male

DRUGS (6)
  1. GENOTROPIN [Suspect]
     Dates: start: 20071101
  2. CORTEF [Concomitant]
  3. CLARITIN [Concomitant]
  4. ADVAIR DISKUS 100/50 [Concomitant]
  5. SYNTHROID [Concomitant]
  6. MONTELUKAST SODIUM [Concomitant]

REACTIONS (5)
  - HEADACHE [None]
  - INFECTIOUS MONONUCLEOSIS [None]
  - OROPHARYNGEAL PAIN [None]
  - VOMITING [None]
  - WISDOM TEETH REMOVAL [None]
